FAERS Safety Report 6411509-3 (Version None)
Quarter: 2009Q4

REPORT INFORMATION
  Report Type: 
  Country: None (occurrence: None)
  Receive Date: 20091023
  Receipt Date: 20091015
  Transmission Date: 20100525
  Serious: Yes (Other)
  Sender: FDA-Public Use
  Company Number: US-ELI_LILLY_AND_COMPANY-US200910004188

PATIENT
  Sex: Female

DRUGS (6)
  1. HUMATROPE [Suspect]
     Indication: GROWTH RETARDATION
     Dosage: 1.1 MG, DAILY (1/D)
     Dates: start: 20050101, end: 20090401
  2. HUMATROPE [Suspect]
     Dosage: 1.1 MG, DAILY (1/D)
     Dates: start: 20091014
  3. LEVOTHYROXINE SODIUM [Concomitant]
  4. FLUOXETINE [Concomitant]
  5. DETROL [Concomitant]
  6. CIPROFLOXACIN HYDROCHLORIDE [Concomitant]

REACTIONS (5)
  - DEVICE MISUSE [None]
  - HYPERTONIC BLADDER [None]
  - TETHERED CORD SYNDROME [None]
  - URINARY INCONTINENCE [None]
  - URINARY TRACT INFECTION [None]
